FAERS Safety Report 13439845 (Version 2)
Quarter: 2017Q2

REPORT INFORMATION
  Report Type: Spontaneous
  Country: CA (occurrence: CA)
  Receive Date: 20170413
  Receipt Date: 20170424
  Transmission Date: 20170830
  Serious: Yes (Other)
  Sender: FDA-Public Use
  Company Number: CA-009507513-1704CAN003365

PATIENT

DRUGS (3)
  1. TEMODAL [Suspect]
     Active Substance: TEMOZOLOMIDE
     Dosage: CCRT: 75 MG/M2/DAY, ADMINISTERED 7 DAYS PER WEEK
     Route: 065
  2. TEMODAL [Suspect]
     Active Substance: TEMOZOLOMIDE
     Indication: GLIOBLASTOMA
     Dosage: ADJUVANT TMZ: 150 MG/M2/DAY FOR THE FIRST CYCLE
     Route: 065
  3. TEMODAL [Suspect]
     Active Substance: TEMOZOLOMIDE
     Dosage: ADJUVANT TMZ: 200 MG/M2/DAY FOR THE SECOND CYCLE
     Route: 065

REACTIONS (1)
  - Glioblastoma [Unknown]
